FAERS Safety Report 6640740-7 (Version None)
Quarter: 2010Q1

REPORT INFORMATION
  Report Type: 
  Country: None (occurrence: None)
  Receive Date: 20100318
  Receipt Date: 20100308
  Transmission Date: 20100710
  Serious: Yes (Other)
  Sender: FDA-Public Use
  Company Number: US-ABBOTT-09P-163-0608345-00

PATIENT
  Sex: Female

DRUGS (2)
  1. HUMIRA [Suspect]
     Indication: RHEUMATOID ARTHRITIS
     Dates: start: 20090112, end: 20091001
  2. HUMIRA [Suspect]
     Indication: PSORIASIS

REACTIONS (3)
  - CHEST PAIN [None]
  - COUGH [None]
  - PULMONARY MASS [None]
